FAERS Safety Report 4540464-6 (Version None)
Quarter: 2004Q4

REPORT INFORMATION
  Report Type: 
  Country: None (occurrence: None)
  Receive Date: 20041228
  Receipt Date: 20041215
  Transmission Date: 20050328
  Serious: Yes (Hospitalization, Other)
  Sender: FDA-Public Use
  Company Number: 2004S1003386

PATIENT
  Age: 69 Year
  Sex: Male

DRUGS (17)
  1. MICARDIS [Suspect]
     Dosage: 40 MG QD, ORAL
     Route: 048
     Dates: start: 20040107
  2. METOPROLOL [Suspect]
  3. FUROSEMIDE [Suspect]
     Dosage: 120 MG/DAY
  4. DOXAZOSIN [Suspect]
  5. ALDACTONE [Suspect]
  6. PREDNISONE [Concomitant]
  7. RAPAMUNE [Concomitant]
  8. ASPIRIN [Concomitant]
  9. NPH INSULIN [Concomitant]
  10. FLUOXETINE [Concomitant]
  11. ISOPHANE INSULIN [Concomitant]
  12. INSULIN LISPRO [Concomitant]
  13. ATORVASTATIN [Concomitant]
  14. POTASSIUM CHLORIDE [Concomitant]
  15. NICOTINIC ACID [Concomitant]
  16. RABEPRZOLE SODIUM [Concomitant]
  17. SILDENAFIL CITRATE [Concomitant]

REACTIONS (2)
  - HYPOTENSION [None]
  - RENAL FAILURE ACUTE [None]
